FAERS Safety Report 12177570 (Version 1)
Quarter: 2016Q1

REPORT INFORMATION
  Report Type: Spontaneous
  Country: US (occurrence: US)
  Receive Date: 20160314
  Receipt Date: 20160314
  Transmission Date: 20160526
  Serious: Yes (Other)
  Sender: FDA-Public Use
  Company Number: US-PFIZER INC-2016146690

PATIENT
  Age: 54 Year
  Sex: Female

DRUGS (1)
  1. CHLORAMPHENICOL [Suspect]
     Active Substance: CHLORAMPHENICOL
     Dosage: 4.5 GM. HAD BEEN TAKEN
     Route: 048

REACTIONS (1)
  - Pseudomembranous colitis [Unknown]
